FAERS Safety Report 9816935 (Version 1)
Quarter: 2014Q1

REPORT INFORMATION
  Report Type: Report from Study
  Country: BR (occurrence: BR)
  Receive Date: 20140114
  Receipt Date: 20140114
  Transmission Date: 20141002
  Serious: Yes (Hospitalization, Other)
  Sender: FDA-Public Use
  Company Number: PHHY2014BR002544

PATIENT
  Age: 74 Year
  Sex: Male
  Weight: 80 kg

DRUGS (5)
  1. EXELON PATCH [Suspect]
     Indication: MEMORY IMPAIRMENT
     Dosage: 9.5 MG, DAILY
     Route: 062
     Dates: start: 201306, end: 201310
  2. ENALAPRIL [Suspect]
     Dosage: UNK UKN, UNK
     Dates: end: 201312
  3. LEXAPRO [Suspect]
     Indication: DEPRESSION
     Dosage: 1 DF, QD (AT NIGHT)
     Dates: start: 201309, end: 2013
  4. PROLOPA [Concomitant]
     Dosage: UNK UKN, UNK
     Dates: start: 201311
  5. LOSARTAN [Concomitant]
     Dosage: UNK UKN, UNK
     Dates: start: 201312

REACTIONS (5)
  - Haemorrhage urinary tract [Recovered/Resolved]
  - Urinary tract infection [Recovered/Resolved]
  - Blood sodium decreased [Recovered/Resolved]
  - Depression [Recovered/Resolved]
  - Dizziness [Not Recovered/Not Resolved]
